FAERS Safety Report 14361112 (Version 1)
Quarter: 2018Q1

REPORT INFORMATION
  Report Type: Spontaneous
  Country: US (occurrence: US)
  Receive Date: 20180105
  Receipt Date: 20180105
  Transmission Date: 20180509
  Serious: Yes (Other)
  Sender: FDA-Public Use
  Company Number: None

PATIENT
  Age: 23 Year
  Sex: Male
  Weight: 56.25 kg

DRUGS (1)
  1. CHANTIX [Suspect]
     Active Substance: VARENICLINE TARTRATE
     Indication: SMOKING CESSATION THERAPY
     Dosage: ?          QUANTITY:1 TABLET(S);?
     Route: 048
     Dates: start: 20171222, end: 20171230

REACTIONS (14)
  - Paranoia [None]
  - Disturbance in attention [None]
  - Staring [None]
  - Agitation [None]
  - Confusional state [None]
  - Cognitive disorder [None]
  - Somnambulism [None]
  - Anger [None]
  - Delusion [None]
  - Fear [None]
  - Sleep terror [None]
  - Depression [None]
  - Mood swings [None]
  - Hallucination [None]

NARRATIVE: CASE EVENT DATE: 20171230
